FAERS Safety Report 14968838 (Version 1)
Quarter: 2018Q2

REPORT INFORMATION
  Report Type: Spontaneous
  Country: US (occurrence: US)
  Receive Date: 20180604
  Receipt Date: 20180604
  Transmission Date: 20180711
  Serious: No
  Sender: FDA-Public Use
  Company Number: US-BAYER-2018-104919

PATIENT
  Age: 68 Year
  Sex: Female
  Weight: 88 kg

DRUGS (2)
  1. MELOXICAM. [Concomitant]
     Active Substance: MELOXICAM
     Dosage: UNK
  2. ALEVE [Suspect]
     Active Substance: NAPROXEN SODIUM
     Indication: PAIN
     Dosage: UNK
     Route: 048
     Dates: start: 20180531

REACTIONS (1)
  - Expired product administered [Unknown]

NARRATIVE: CASE EVENT DATE: 20180531
